FAERS Safety Report 19857457 (Version 1)
Quarter: 2021Q3

REPORT INFORMATION
  Report Type: Spontaneous
  Country: DE (occurrence: DE)
  Receive Date: 20210920
  Receipt Date: 20210920
  Transmission Date: 20211014
  Serious: Yes (Other)
  Sender: FDA-Public Use
  Company Number: DE-SA-2021SA306104

PATIENT
  Sex: Male

DRUGS (3)
  1. FINASTERIDE. [Suspect]
     Active Substance: FINASTERIDE
     Dosage: 1 MG
     Dates: start: 2013
  2. RIVAROXABAN [Suspect]
     Active Substance: RIVAROXABAN
     Dosage: 20 MG
  3. IRBESARTAN. [Suspect]
     Active Substance: IRBESARTAN
     Dosage: 300 MG

REACTIONS (2)
  - Mineral metabolism disorder [Unknown]
  - Gamma-glutamyltransferase increased [Unknown]
